FAERS Safety Report 23327754 (Version 1)
Quarter: 2023Q4

REPORT INFORMATION
  Report Type: Spontaneous
  Country: PT (occurrence: PT)
  Receive Date: 20231221
  Receipt Date: 20231221
  Transmission Date: 20240109
  Serious: Yes (Hospitalization, Other)
  Sender: FDA-Public Use
  Company Number: PT-ELI_LILLY_AND_COMPANY-PT202312003812

PATIENT
  Age: 74 Year
  Sex: Male

DRUGS (2)
  1. PEMETREXED [Suspect]
     Active Substance: PEMETREXED
     Indication: Non-small cell lung cancer stage IV
     Dosage: 500 MG/M2, UNKNOWN
     Route: 065
     Dates: start: 201910
  2. CARBOPLATIN [Concomitant]
     Active Substance: CARBOPLATIN
     Indication: Non-small cell lung cancer stage IV

REACTIONS (4)
  - Cardiotoxicity [Recovered/Resolved]
  - Malignant neoplasm progression [Recovered/Resolved]
  - Nephropathy toxic [Recovered/Resolved]
  - Back pain [Recovered/Resolved]
